FAERS Safety Report 6347999-4 (Version None)
Quarter: 2009Q3

REPORT INFORMATION
  Report Type: 
  Country: None (occurrence: None)
  Receive Date: 20090910
  Receipt Date: 20090901
  Transmission Date: 20100115
  Serious: Yes (Hospitalization)
  Sender: FDA-Public Use
  Company Number: SE-SANOFI-SYNTHELABO-A01200909109

PATIENT
  Sex: Male

DRUGS (2)
  1. PLAQUENIL [Suspect]
     Indication: DRUG USE FOR UNKNOWN INDICATION
     Route: 048
     Dates: start: 19930101, end: 20090601
  2. PLAQUENIL [Suspect]
     Route: 065
     Dates: start: 20090601, end: 20090625

REACTIONS (3)
  - AMNESIA [None]
  - ATRIAL FIBRILLATION [None]
  - PERSONALITY CHANGE [None]
